FAERS Safety Report 11989526 (Version 2)
Quarter: 2016Q1

REPORT INFORMATION
  Report Type: Spontaneous
  Country: JP (occurrence: JP)
  Receive Date: 20160202
  Receipt Date: 20160317
  Transmission Date: 20160526
  Serious: Yes (Life-Threatening, Other)
  Sender: FDA-Public Use
  Company Number: JP-BAYER-2016-014436

PATIENT
  Age: 70 Year
  Sex: Male
  Weight: 53 kg

DRUGS (3)
  1. BAYASPIRIN [Suspect]
     Active Substance: ASPIRIN
     Indication: INTRACRANIAL ANEURYSM
     Dosage: DAILY DOSE 100 MG
     Route: 048
     Dates: start: 20140627, end: 201407
  2. PLETAAL [Suspect]
     Active Substance: CILOSTAZOL
     Dosage: DAILY DOSE 200 MG
     Route: 048
     Dates: start: 20140630, end: 20140724
  3. TAKEPRON [Concomitant]
     Active Substance: LANSOPRAZOLE
     Dosage: DAILY DOSE 15 MG
     Dates: start: 20140630

REACTIONS (2)
  - Cerebral infarction [None]
  - Small intestinal haemorrhage [Recovering/Resolving]

NARRATIVE: CASE EVENT DATE: 20140724
